FAERS Safety Report 4492729-4 (Version None)
Quarter: 2004Q4

REPORT INFORMATION
  Report Type: 
  Country: None (occurrence: None)
  Receive Date: 20041104
  Receipt Date: 20040930
  Transmission Date: 20050328
  Serious: Yes (Hospitalization)
  Sender: FDA-Public Use
  Company Number: 200419752GDDC

PATIENT
  Age: 83 Year
  Sex: Female

DRUGS (6)
  1. FLUDEX [Suspect]
     Indication: ESSENTIAL HYPERTENSION
     Route: 048
     Dates: start: 20040330, end: 20040414
  2. COVERSYL [Suspect]
     Route: 048
     Dates: start: 20040330, end: 20040414
  3. BISOPROLOL FUMARATE [Suspect]
     Route: 048
     Dates: start: 20040330, end: 20040414
  4. DIFFU K [Suspect]
     Dosage: DOSE: 2 DF
     Route: 048
     Dates: start: 20040330, end: 20040414
  5. ALDACTONE [Suspect]
     Route: 048
     Dates: start: 20040330, end: 20040414
  6. NICARDIPINE HCL [Concomitant]

REACTIONS (6)
  - ASTHENIA [None]
  - BLOOD PRESSURE SYSTOLIC INCREASED [None]
  - BRADYCARDIA [None]
  - HYPERKALAEMIA [None]
  - HYPONATRAEMIA [None]
  - NAUSEA [None]
